FAERS Safety Report 9693557 (Version 3)
Quarter: 2013Q4

REPORT INFORMATION
  Report Type: Report from Study
  Country: ES (occurrence: ES)
  Receive Date: 20131118
  Receipt Date: 20131210
  Transmission Date: 20140711
  Serious: Yes (Death, Life-Threatening, Hospitalization, Other)
  Sender: FDA-Public Use
  Company Number: ES-VIIV HEALTHCARE LIMITED-B0944139A

PATIENT
  Age: 49 Year
  Sex: Male
  Weight: 91 kg

DRUGS (4)
  1. MARAVIROC [Suspect]
     Indication: HIV INFECTION
     Dates: start: 20130607
  2. DARUNAVIR [Concomitant]
     Indication: HIV INFECTION
     Route: 048
     Dates: end: 20131108
  3. NORVIR [Concomitant]
     Indication: HIV INFECTION
     Route: 048
  4. RALTEGRAVIR [Concomitant]
     Indication: HIV INFECTION
     Route: 048
     Dates: end: 20131108

REACTIONS (4)
  - Cholecystitis [Fatal]
  - Hepatic failure [Fatal]
  - Hepatorenal syndrome [Fatal]
  - Escherichia bacteraemia [Fatal]
